FAERS Safety Report 8828942 (Version 2)
Quarter: 2012Q4

REPORT INFORMATION
  Report Type: 
  Country: US (occurrence: US)
  Receive Date: 20121009
  Receipt Date: 20121031
  Transmission Date: 20130627
  Serious: No
  Sender: FDA-Public Use
  Company Number: US-009507513-1209USA007102

PATIENT
  Sex: Male

DRUGS (3)
  1. PEG-INTRON [Suspect]
     Dosage: 120 Microgram, qw
     Route: 058
     Dates: start: 201206
  2. VICTRELIS [Suspect]
     Dosage: 800 mg, tid
     Route: 048
     Dates: start: 201206
  3. RIBASPHERE [Suspect]
     Dosage: UNK

REACTIONS (3)
  - Nocturia [Unknown]
  - Fatigue [Unknown]
  - Pollakiuria [Unknown]
